FAERS Safety Report 20659143 (Version 1)
Quarter: 2022Q1

REPORT INFORMATION
  Report Type: Spontaneous
  Country: US (occurrence: US)
  Receive Date: 20220331
  Receipt Date: 20220331
  Transmission Date: 20220423
  Serious: Yes (Other)
  Sender: FDA-Public Use
  Company Number: US-BRISTOL-MYERS SQUIBB COMPANY-2022-012203

PATIENT
  Age: 50 Year
  Sex: Male

DRUGS (1)
  1. THALOMID [Suspect]
     Active Substance: THALIDOMIDE
     Indication: Lymphadenopathy

REACTIONS (2)
  - Intentional product use issue [Unknown]
  - Castleman^s disease [Unknown]

NARRATIVE: CASE EVENT DATE: 20220316
